FAERS Safety Report 8579079-1 (Version None)
Quarter: 2012Q2

REPORT INFORMATION
  Report Type: 
  Country: None (occurrence: None)
  Receive Date: 20120423
  Receipt Date: 20100518
  Transmission Date: 20120825
  Serious: Yes (Other)
  Sender: FDA-Public Use
  Company Number: PHHY2010US31365

PATIENT
  Age: 47 Year
  Sex: Female
  Weight: 96.8 kg

DRUGS (19)
  1. LORTAB (HYDROCODONE BITRATRATE, PARACETAMOL) [Concomitant]
  2. COMPRO (PROCHLORPERAZINE) [Concomitant]
  3. FLONASE [Concomitant]
  4. KLONOPIN [Concomitant]
  5. CYCLOSPORINE [Concomitant]
  6. AUGMENTIN (AMOXICILLIN SODIUM, CALVULANATE POTASSIUM) [Concomitant]
  7. CELEXA [Concomitant]
  8. LEVOXYL [Concomitant]
  9. EXJADE [Suspect]
     Indication: IRON OVERLOAD
     Dosage: 1750 MG, QD, ORAL
     Route: 048
     Dates: start: 20100422
  10. EXJADE [Suspect]
     Indication: APLASTIC ANAEMIA
     Dosage: 1750 MG, QD, ORAL
     Route: 048
     Dates: start: 20100422
  11. BUPROPION XL (BUPROPION) [Concomitant]
  12. FLAGYL [Concomitant]
  13. XOPENEX [Concomitant]
  14. EMLA [Concomitant]
  15. FLUCONAZOLE [Concomitant]
  16. SPIRIVA [Concomitant]
  17. CYCLOSPORINE [Concomitant]
  18. DAPSONE [Concomitant]
  19. OMEPRAZOLE [Concomitant]

REACTIONS (1)
  - RASH [None]
